FAERS Safety Report 17826035 (Version 5)
Quarter: 2020Q4

REPORT INFORMATION
  Report Type: Spontaneous
  Country: CA (occurrence: CA)
  Receive Date: 20200526
  Receipt Date: 20201215
  Transmission Date: 20210113
  Serious: Yes (Other)
  Sender: FDA-Public Use
  Company Number: CA-PFIZER INC-2020095781

PATIENT
  Age: 39 Year
  Sex: Male

DRUGS (7)
  1. XELJANZ [Suspect]
     Active Substance: TOFACITINIB CITRATE
     Dosage: 5 MG, 2X/DAY
     Route: 048
     Dates: start: 2020, end: 2020
  2. MONTELUKAST [Concomitant]
     Active Substance: MONTELUKAST SODIUM
     Dosage: UNK
     Route: 065
  3. SYMBICORT [Concomitant]
     Active Substance: BUDESONIDE\FORMOTEROL FUMARATE DIHYDRATE
     Dosage: UNK
     Route: 065
  4. VENTOLIN [Concomitant]
     Active Substance: ALBUTEROL SULFATE
     Indication: NASOPHARYNGITIS
     Dosage: UNK
     Route: 065
     Dates: start: 2019
  5. PREDNISONE. [Concomitant]
     Active Substance: PREDNISONE
     Dosage: 10 MG, 1X/DAY
     Route: 065
  6. PREDNISONE. [Concomitant]
     Active Substance: PREDNISONE
     Dosage: UNK
     Route: 065
  7. XELJANZ [Suspect]
     Active Substance: TOFACITINIB CITRATE
     Indication: PSORIATIC ARTHROPATHY
     Dosage: 5 MG, 2X/DAY
     Route: 048
     Dates: start: 20200214, end: 20200313

REACTIONS (22)
  - Acne [Recovering/Resolving]
  - Nausea [Unknown]
  - Muscle spasms [Unknown]
  - Speech disorder [Unknown]
  - Aphasia [Unknown]
  - Abdominal pain upper [Unknown]
  - Gastrointestinal infection [Unknown]
  - Dysbiosis [Recovering/Resolving]
  - Parkinson^s disease [Unknown]
  - Somnolence [Unknown]
  - Abdominal discomfort [Unknown]
  - Memory impairment [Unknown]
  - Cognitive disorder [Unknown]
  - Dermal cyst [Unknown]
  - Fatigue [Unknown]
  - Abdominal pain lower [Unknown]
  - Decreased appetite [Unknown]
  - Diverticulitis [Unknown]
  - Skin ulcer [Unknown]
  - Abdominal distension [Unknown]
  - Constipation [Recovering/Resolving]
  - Balance disorder [Unknown]

NARRATIVE: CASE EVENT DATE: 2020
